FAERS Safety Report 4899166-9 (Version None)
Quarter: 2006Q1

REPORT INFORMATION
  Report Type: 
  Country: None (occurrence: None)
  Receive Date: 20060125
  Receipt Date: 20060110
  Transmission Date: 20060701
  Serious: Yes (Death)
  Sender: FDA-Public Use
  Company Number: M2006-001

PATIENT
  Age: 51 Year
  Sex: Male

DRUGS (3)
  1. ALLERGENIC EXTRACTS [Suspect]
     Indication: HYPERSENSITIVITY
     Dosage: 0.4 ML WEEKLY INJERCTION FOR SEVERAL YEARS
  2. ACE INHIBITOR [Concomitant]
  3. SYNTHROID [Concomitant]

REACTIONS (6)
  - DYSPNOEA [None]
  - FEELING JITTERY [None]
  - FLUSHING [None]
  - NAUSEA [None]
  - TACHYCARDIA [None]
  - VOMITING [None]
